FAERS Safety Report 7384448-1 (Version None)
Quarter: 2011Q1

REPORT INFORMATION
  Report Type: 
  Country: None (occurrence: None)
  Receive Date: 20110330
  Receipt Date: 20110328
  Transmission Date: 20110831
  Serious: Yes (Other)
  Sender: FDA-Public Use
  Company Number: US-PFIZER INC-2011069430

PATIENT
  Sex: Female

DRUGS (2)
  1. XALATAN [Suspect]
     Indication: GLAUCOMA
     Dosage: ONE DROP EACH EYE, ONCE A DAY
     Route: 047
     Dates: end: 20110101
  2. LATANOPROST [Suspect]
     Indication: GLAUCOMA
     Dosage: ONE DROP EACH EYE, ONCE DAILY
     Route: 047
     Dates: start: 20110301

REACTIONS (3)
  - DRY EYE [None]
  - EYE SWELLING [None]
  - EYE DISORDER [None]
